FAERS Safety Report 12547163 (Version 3)
Quarter: 2016Q3

REPORT INFORMATION
  Report Type: Report from Study
  Country: IL (occurrence: IL)
  Receive Date: 20160711
  Receipt Date: 20160825
  Transmission Date: 20161109
  Serious: Yes (Death, Life-Threatening, Hospitalization)
  Sender: FDA-Public Use
  Company Number: IL-ABBVIE-16P-082-1668834-00

PATIENT
  Age: 42 Year
  Sex: Male

DRUGS (1)
  1. VENETOCLAX [Suspect]
     Active Substance: VENETOCLAX
     Indication: CHRONIC LYMPHOCYTIC LEUKAEMIA
     Route: 048
     Dates: start: 20160529

REACTIONS (5)
  - Fungal sepsis [Fatal]
  - Cryptococcosis [Fatal]
  - Bacterial sepsis [Fatal]
  - Full blood count decreased [Fatal]
  - Richter^s syndrome [Fatal]

NARRATIVE: CASE EVENT DATE: 201606
